FAERS Safety Report 21034321 (Version 1)
Quarter: 2022Q3

REPORT INFORMATION
  Report Type: Spontaneous
  Country: VN (occurrence: VN)
  Receive Date: 20220701
  Receipt Date: 20220701
  Transmission Date: 20221027
  Serious: Yes (Other)
  Sender: FDA-Public Use
  Company Number: VN-Merck Healthcare KGaA-9332115

PATIENT
  Age: 62 Year
  Sex: Male

DRUGS (7)
  1. ERBITUX [Suspect]
     Active Substance: CETUXIMAB
     Indication: Colorectal cancer metastatic
     Dosage: 600 MG, UNKNOWN (5 CYCLES)
     Route: 042
     Dates: start: 20220201
  2. ERBITUX [Suspect]
     Active Substance: CETUXIMAB
     Dosage: UNK UNK, UNKNOWN (2 CYCLES)
     Route: 042
  3. CAPECITABINE [Concomitant]
     Active Substance: CAPECITABINE
     Indication: Colorectal cancer metastatic
     Dosage: 2 CYCLES
     Dates: start: 202112
  4. CAPECITABINE [Concomitant]
     Active Substance: CAPECITABINE
     Dosage: 5 CYCLES
     Dates: start: 202202
  5. CAPECITABINE [Concomitant]
     Active Substance: CAPECITABINE
     Dosage: 2 CYCLES
  6. OXALIPLATIN [Concomitant]
     Active Substance: OXALIPLATIN
     Indication: Colorectal cancer metastatic
     Dosage: 2 CYCLES
     Dates: start: 202112
  7. OXALIPLATIN [Concomitant]
     Active Substance: OXALIPLATIN
     Dosage: 5 CYCLES
     Dates: start: 202202

REACTIONS (2)
  - Thrombocytopenia [Unknown]
  - Off label use [Unknown]
